FAERS Safety Report 4509591-3 (Version None)
Quarter: 2004Q4

REPORT INFORMATION
  Report Type: 
  Country: None (occurrence: None)
  Receive Date: 20041119
  Receipt Date: 20041102
  Transmission Date: 20050328
  Serious: Yes (Other)
  Sender: FDA-Public Use
  Company Number: USA041182946

PATIENT
  Age: 77 Year
  Sex: Female

DRUGS (3)
  1. GEMZAR [Suspect]
     Indication: PANCREATIC CARCINOMA
     Dates: start: 20040712
  2. PANCREATIC ENZYMES (PANCRELIPASE) [Concomitant]
  3. EYE DROPS (TETRYZOLINE HYDROCHLORIDE) [Concomitant]

REACTIONS (2)
  - CONDITION AGGRAVATED [None]
  - GLAUCOMA [None]
